FAERS Safety Report 7188833-2 (Version None)
Quarter: 2010Q4

REPORT INFORMATION
  Report Type: 
  Country: None (occurrence: None)
  Receive Date: 20101222
  Receipt Date: 20100727
  Transmission Date: 20110411
  Serious: No
  Sender: FDA-Public Use
  Company Number: US-AMGEN-KDL427232

PATIENT

DRUGS (13)
  1. ENBREL [Suspect]
     Indication: PRODUCT USED FOR UNKNOWN INDICATION
     Dosage: 50 MG, QWK
     Route: 058
  2. PREDNISONE [Concomitant]
     Dosage: 10 MG, UNK
  3. METHOTREXATE [Concomitant]
     Dosage: 2.5 MG, UNK
  4. LORATADINE [Concomitant]
     Dosage: 10 MG, UNK
  5. PRAVASTATIN [Concomitant]
     Dosage: 10 MG, UNK
  6. NAPROXEN [Concomitant]
     Dosage: 500 MG, UNK
  7. LISINOPRIL [Concomitant]
     Dosage: 5 MG, UNK
  8. CITALOPRAM [Concomitant]
     Dosage: 20 MG, UNK
  9. METFORMIN [Concomitant]
     Dosage: 1000 MG, UNK
  10. FOLIC ACID [Concomitant]
     Dosage: 1 MG, UNK
  11. OMEPRAZOLE [Concomitant]
     Dosage: 40 MG, UNK
  12. PIOGLITAZONE HCL [Concomitant]
     Dosage: 15 MG, UNK
  13. OXYCODONE HYDROCHLORIDE [Concomitant]
     Dosage: 10 MG, UNK

REACTIONS (6)
  - DYSPNOEA [None]
  - MUSCULOSKELETAL CHEST PAIN [None]
  - OEDEMA PERIPHERAL [None]
  - PRODUCTIVE COUGH [None]
  - PYREXIA [None]
  - TOOTH DISORDER [None]
